FAERS Safety Report 19661352 (Version 1)
Quarter: 2021Q3

REPORT INFORMATION
  Report Type: Spontaneous
  Country: JP (occurrence: JP)
  Receive Date: 20210805
  Receipt Date: 20210805
  Transmission Date: 20211014
  Serious: Yes (Death)
  Sender: FDA-Public Use
  Company Number: JP-ROCHE-2878421

PATIENT
  Age: 7 Decade
  Sex: Female

DRUGS (1)
  1. ENSPRYNG [Suspect]
     Active Substance: SATRALIZUMAB-MWGE
     Indication: NEUROMYELITIS OPTICA SPECTRUM DISORDER
     Route: 058
     Dates: start: 20210601, end: 20210629

REACTIONS (3)
  - Dehydration [Not Recovered/Not Resolved]
  - Death [Fatal]
  - White blood cell count increased [Unknown]

NARRATIVE: CASE EVENT DATE: 202107
